FAERS Safety Report 4613690-5 (Version None)
Quarter: 2005Q1

REPORT INFORMATION
  Report Type: 
  Country: None (occurrence: None)
  Receive Date: 20050315
  Receipt Date: 20050225
  Transmission Date: 20050727
  Serious: Yes (Hospitalization)
  Sender: FDA-Public Use
  Company Number: 10447

PATIENT
  Age: 59 Year
  Sex: Male

DRUGS (5)
  1. METHOTREXATE [Suspect]
     Indication: RHEUMATOID ARTHRITIS
     Dosage: 30 MG WEEKLY
     Dates: start: 19950501
  2. CYCLOSPORINE [Suspect]
     Indication: RHEUMATOID ARTHRITIS
     Dosage: 2.7 MG/KG
     Dates: start: 20011126
  3. FOLIC ACID [Concomitant]
  4. ALENDRONATE SODIUM [Concomitant]
  5. RANITIDINE [Concomitant]

REACTIONS (7)
  - HEADACHE [None]
  - LUNG INFECTION [None]
  - MENINGITIS VIRAL [None]
  - MUSCULOSKELETAL STIFFNESS [None]
  - NEUTROPENIA [None]
  - PYREXIA [None]
  - VOMITING [None]
